APPROVED DRUG PRODUCT: NIFEDIPINE
Active Ingredient: NIFEDIPINE
Strength: 10MG
Dosage Form/Route: CAPSULE;ORAL
Application: A072651 | Product #001
Applicant: TEVA PHARMACEUTICALS USA INC
Approved: Feb 19, 1992 | RLD: No | RS: No | Type: DISCN